FAERS Safety Report 8019292-5 (Version None)
Quarter: 2012Q1

REPORT INFORMATION
  Report Type: 
  Country: None (occurrence: None)
  Receive Date: 20120103
  Receipt Date: 20111228
  Transmission Date: 20120608
  Serious: Yes (Death, Hospitalization)
  Sender: FDA-Public Use
  Company Number: KR-ELI_LILLY_AND_COMPANY-KR201112000744

PATIENT
  Age: 57 Year
  Sex: Male

DRUGS (3)
  1. CHEMOTHERAPEUTICS [Concomitant]
     Indication: HEPATIC NEOPLASM
     Dosage: UNK
  2. HUMALOG MIX 75/25 [Suspect]
     Dosage: 12 U, EACH EVENING
     Route: 058
     Dates: start: 20111013
  3. HUMALOG MIX 75/25 [Suspect]
     Indication: DIABETES MELLITUS
     Dosage: 30 U, EACH MORNING
     Route: 058
     Dates: start: 20111013

REACTIONS (1)
  - HEPATIC NEOPLASM MALIGNANT [None]
